FAERS Safety Report 6686910-3 (Version None)
Quarter: 2010Q2

REPORT INFORMATION
  Report Type: 
  Country: None (occurrence: None)
  Receive Date: 20100416
  Receipt Date: 20100416
  Transmission Date: 20101027
  Serious: Yes (Disabling)
  Sender: FDA-Public Use
  Company Number: None

PATIENT
  Age: 80 Year
  Sex: Male
  Weight: 77.1115 kg

DRUGS (1)
  1. ORPHENADRINE CITRATE [Suspect]
     Indication: MUSCLE SPASMS
     Dosage: ONE TABLET TWICE DAILEY ORALLY
     Route: 048
     Dates: start: 20060926, end: 20060930

REACTIONS (10)
  - CONFUSIONAL STATE [None]
  - CONTUSION [None]
  - COUGH [None]
  - DYSGRAPHIA [None]
  - DYSKINESIA [None]
  - DYSPHONIA [None]
  - FALL [None]
  - GAIT DISTURBANCE [None]
  - SLEEP TALKING [None]
  - TREMOR [None]
